FAERS Safety Report 17891425 (Version 3)
Quarter: 2020Q2

REPORT INFORMATION
  Report Type: Report from Study
  Country: JP (occurrence: JP)
  Receive Date: 20200612
  Receipt Date: 20200625
  Transmission Date: 20200714
  Serious: Yes (Other)
  Sender: FDA-Public Use
  Company Number: NVSC2020JP163220

PATIENT
  Age: 66 Year
  Sex: Male
  Weight: 57.6 kg

DRUGS (7)
  1. PLACEBO [Suspect]
     Active Substance: UNSPECIFIED INGREDIENT
     Indication: NON-SMALL CELL LUNG CANCER
     Dosage: UNK
     Route: 058
     Dates: start: 20191016, end: 20200501
  2. COMPARATOR PEMETREXED [Suspect]
     Active Substance: PEMETREXED DISODIUM
     Indication: NON-SMALL CELL LUNG CANCER
     Dosage: 500 MG/KG, Q3W
     Route: 042
     Dates: start: 20191016
  3. AFLIBERCEPT [Concomitant]
     Active Substance: AFLIBERCEPT
     Indication: MACULAR DEGENERATION
     Dosage: UNK
     Route: 065
     Dates: start: 20180913
  4. PEMBROLIZUMAB. [Suspect]
     Active Substance: PEMBROLIZUMAB
     Indication: NON-SMALL CELL LUNG CANCER
     Dosage: 200 MG, Q3W
     Route: 042
     Dates: start: 20191016, end: 20200501
  5. PANVITAN [Concomitant]
     Active Substance: VITAMINS
     Indication: PROPHYLAXIS
     Dosage: UNK
     Route: 065
     Dates: start: 20191010
  6. COMPARATOR CARBOPLATIN [Suspect]
     Active Substance: CARBOPLATIN
     Indication: NON-SMALL CELL LUNG CANCER
     Dosage: 471 MG, Q3W
     Route: 042
     Dates: start: 20191016
  7. LEVOFLOXACIN HEMIHYDRATE [Concomitant]
     Active Substance: LEVOFLOXACIN
     Indication: MACULAR DEGENERATION
     Dosage: UNK
     Route: 065
     Dates: start: 20180913

REACTIONS (2)
  - Second primary malignancy [Not Recovered/Not Resolved]
  - Chronic myelomonocytic leukaemia [Not Recovered/Not Resolved]

NARRATIVE: CASE EVENT DATE: 20200610
